FAERS Safety Report 6531064-7 (Version None)
Quarter: 2010Q1

REPORT INFORMATION
  Report Type: 
  Country: None (occurrence: None)
  Receive Date: 20100108
  Receipt Date: 20091105
  Transmission Date: 20100710
  Serious: No
  Sender: FDA-Public Use
  Company Number: A0815386A

PATIENT
  Age: 30 Year
  Sex: Female

DRUGS (5)
  1. LOVAZA [Suspect]
     Indication: BLOOD CHOLESTEROL INCREASED
     Dosage: 4CAP PER DAY
     Route: 048
     Dates: start: 20090601
  2. TRIPHASIL-21 [Concomitant]
  3. FOLIC ACID [Concomitant]
  4. MULTI-VITAMIN [Concomitant]
  5. VITAMIN B-12 [Concomitant]

REACTIONS (4)
  - ALOPECIA [None]
  - RASH [None]
  - SEBORRHOEA [None]
  - WEIGHT INCREASED [None]
